FAERS Safety Report 16900675 (Version 2)
Quarter: 2019Q4

REPORT INFORMATION
  Report Type: Report from Study
  Country: US (occurrence: US)
  Receive Date: 20191009
  Receipt Date: 20191018
  Transmission Date: 20200122
  Serious: Yes (Other)
  Sender: FDA-Public Use
  Company Number: US-SA-2019SA269883

PATIENT
  Age: 39 Year
  Sex: Female

DRUGS (14)
  1. DUPILUMAB [Suspect]
     Active Substance: DUPILUMAB
     Indication: ECZEMA
  2. MONTELUKAST [Concomitant]
     Active Substance: MONTELUKAST SODIUM
  3. PAROXETINE. [Concomitant]
     Active Substance: PAROXETINE
  4. PREDNISONE. [Concomitant]
     Active Substance: PREDNISONE
  5. EUCRISA [Concomitant]
     Active Substance: CRISABOROLE
  6. ZYRTEC [Concomitant]
     Active Substance: CETIRIZINE HYDROCHLORIDE
  7. HYDROXYZINE [Concomitant]
     Active Substance: HYDROXYZINE HYDROCHLORIDE
  8. PROVENTIL HFA [Concomitant]
     Active Substance: ALBUTEROL SULFATE
  9. DUPILUMAB [Suspect]
     Active Substance: DUPILUMAB
     Indication: DERMATITIS ATOPIC
     Dosage: 300 MG, QOW
     Route: 058
     Dates: start: 20190801
  10. VALACYCLOVIR [Concomitant]
     Active Substance: VALACYCLOVIR HYDROCHLORIDE
  11. OMEPRAZOLE. [Concomitant]
     Active Substance: OMEPRAZOLE
  12. ALPRAZOLAM. [Concomitant]
     Active Substance: ALPRAZOLAM
  13. VENTOLIN HFA [Concomitant]
     Active Substance: ALBUTEROL SULFATE
  14. MIRTAZAPINE. [Concomitant]
     Active Substance: MIRTAZAPINE

REACTIONS (3)
  - Condition aggravated [Unknown]
  - Dermatitis atopic [Unknown]
  - Eczema herpeticum [Unknown]

NARRATIVE: CASE EVENT DATE: 2019
